FAERS Safety Report 20319183 (Version 2)
Quarter: 2022Q1

REPORT INFORMATION
  Report Type: Report from Study
  Country: JP (occurrence: JP)
  Receive Date: 20220110
  Receipt Date: 20220121
  Transmission Date: 20220423
  Serious: Yes (Hospitalization)
  Sender: FDA-Public Use
  Company Number: JP-ONO-2022JP000462

PATIENT
  Age: 63 Year
  Sex: Male
  Weight: 54.8 kg

DRUGS (16)
  1. BMS-986310 [Suspect]
     Active Substance: BMS-986310
     Indication: Colon cancer
     Dosage: 40 MILLIGRAM
     Route: 041
     Dates: start: 20210916
  2. NIVOLUMAB [Suspect]
     Active Substance: NIVOLUMAB
     Indication: Colon cancer
     Dosage: 360 MILLIGRAM
     Route: 041
     Dates: start: 20210916
  3. BEZAFIBRATE [Concomitant]
     Active Substance: BEZAFIBRATE
     Indication: Hyperlipidaemia
     Dosage: 400 MILLIGRAM, QD
     Route: 048
     Dates: start: 2010
  4. NIFEDIPINE [Concomitant]
     Active Substance: NIFEDIPINE
     Indication: Hypertension
     Dosage: 20 MILLIGRAM, QD
     Route: 048
     Dates: start: 2010
  5. BISOPROLOL FUMARATE [Concomitant]
     Active Substance: BISOPROLOL FUMARATE
     Indication: Hypertension
     Dosage: 2.5 MILLIGRAM, QD
     Route: 048
     Dates: start: 2010
  6. ALLOPURINOL [Concomitant]
     Active Substance: ALLOPURINOL
     Indication: Hyperuricaemia
     Dosage: 100 MG, Q12H
     Route: 048
     Dates: start: 2010
  7. URSODIOL [Concomitant]
     Active Substance: URSODIOL
     Indication: Alcoholic liver disease
     Dosage: 200 MILLIGRAM, QD
     Route: 048
     Dates: start: 2010
  8. MAGNESIUM OXIDE [Concomitant]
     Active Substance: MAGNESIUM OXIDE
     Indication: Constipation
     Dosage: 330 MILLIGRAM, PRN
     Route: 048
     Dates: start: 202108
  9. ELOBIXIBAT [Concomitant]
     Active Substance: ELOBIXIBAT
     Indication: Constipation
     Dosage: 5 MILLIGRAM, QD
     Route: 048
     Dates: start: 202108
  10. FERROUS SULFATE [Concomitant]
     Active Substance: FERROUS SULFATE
     Indication: Colon cancer
     Dosage: 210 MILLIGRAM, Q12H
     Route: 048
     Dates: start: 202108
  11. RABEPRAZOLE SODIUM [Concomitant]
     Active Substance: RABEPRAZOLE SODIUM
     Indication: Gastritis prophylaxis
     Dosage: 10 MILLIGRAM, QD
     Route: 048
     Dates: start: 20210916
  12. OLANZAPINE [Concomitant]
     Active Substance: OLANZAPINE
     Indication: Nausea
     Dosage: 2.5 MILLIGRAM, QD
     Route: 048
     Dates: start: 20210922
  13. CARBOHYDRATES\FATTY ACIDS\MINERALS\PROTEIN\VITAMINS [Concomitant]
     Active Substance: CARBOHYDRATES\FATTY ACIDS\MINERALS\PROTEIN\VITAMINS
     Indication: Decreased appetite
     Dosage: 20 MILLIGRAM, QD
     Route: 048
     Dates: start: 20211013
  14. BEVACIZUMAB [Concomitant]
     Active Substance: BEVACIZUMAB
     Indication: Colon cancer
     Dosage: 7.5 MILLIGRAM/KILOGRAM, Q3WK
     Route: 042
     Dates: start: 20210916
  15. OXALIPLATIN [Concomitant]
     Active Substance: OXALIPLATIN
     Indication: Colon cancer
     Dosage: 130 MILLIGRAM/SQ. METER, Q3WK
     Route: 042
     Dates: start: 20210916
  16. CAPECITABINE [Concomitant]
     Active Substance: CAPECITABINE
     Indication: Colon cancer
     Dosage: 1000 MILLIGRAM/SQ. METER, Q12H
     Route: 048
     Dates: start: 20210916

REACTIONS (1)
  - Hypopituitarism [Recovered/Resolved]

NARRATIVE: CASE EVENT DATE: 20220105
